FAERS Safety Report 5636976-4 (Version None)
Quarter: 2008Q1

REPORT INFORMATION
  Report Type: 
  Country: None (occurrence: None)
  Receive Date: 20080225
  Receipt Date: 20070307
  Transmission Date: 20080703
  Serious: No
  Sender: FDA-Public Use
  Company Number: US-BRISTOL-MYERS SQUIBB COMPANY-13706106

PATIENT
  Age: 51 Year
  Sex: Male

DRUGS (2)
  1. GLUCOPHAGE [Suspect]
  2. AVANDIA [Suspect]

REACTIONS (2)
  - ANGER [None]
  - CHEST PAIN [None]
